FAERS Safety Report 8455987-7 (Version None)
Quarter: 2012Q2

REPORT INFORMATION
  Report Type: 
  Country: None (occurrence: None)
  Receive Date: 20120323
  Receipt Date: 20110823
  Transmission Date: 20120825
  Serious: Yes (Other)
  Sender: FDA-Public Use
  Company Number: 163-21880-11082928

PATIENT
  Age: 69 Year
  Sex: Female

DRUGS (1)
  1. REVLIMID [Suspect]
     Indication: MULTIPLE MYELOMA
     Dosage: 25 MG, DAILY X 21 DAYS, PO
     Route: 048
     Dates: start: 20110401

REACTIONS (7)
  - COMPRESSION FRACTURE [None]
  - MULTIPLE MYELOMA [None]
  - WEIGHT DECREASED [None]
  - BONE PAIN [None]
  - NEUTROPENIA [None]
  - ASTHENIA [None]
  - DECREASED APPETITE [None]
